FAERS Safety Report 18388101 (Version 1)
Quarter: 2020Q4

REPORT INFORMATION
  Report Type: Report from Study
  Country: None (occurrence: US)
  Receive Date: 20201015
  Receipt Date: 20201015
  Transmission Date: 20210114
  Serious: No
  Sender: FDA-Public Use
  Company Number: US-BIOVITRUM-2020US5348

PATIENT
  Sex: Female

DRUGS (2)
  1. KINERET [Suspect]
     Active Substance: ANAKINRA
     Indication: PRODUCT USED FOR UNKNOWN INDICATION
     Route: 058
  2. LEFLUNOMIDE. [Concomitant]
     Active Substance: LEFLUNOMIDE

REACTIONS (9)
  - Dyspnoea [Unknown]
  - Chills [Unknown]
  - Injection site warmth [Not Recovered/Not Resolved]
  - Swelling of eyelid [Unknown]
  - Injection site erythema [Not Recovered/Not Resolved]
  - Insomnia [Unknown]
  - Joint swelling [Unknown]
  - Injection site mass [Not Recovered/Not Resolved]
  - Injection site inflammation [Not Recovered/Not Resolved]
